FAERS Safety Report 12348618 (Version 4)
Quarter: 2019Q2

REPORT INFORMATION
  Report Type: Report from Study
  Country: US (occurrence: US)
  Receive Date: 20160509
  Receipt Date: 20190618
  Transmission Date: 20190711
  Serious: Yes (Hospitalization, Other)
  Sender: FDA-Public Use
  Company Number: US-SA-2016SA080511

PATIENT
  Age: 54 Year
  Sex: Female

DRUGS (2)
  1. ALEMTUZUMAB [Suspect]
     Active Substance: ALEMTUZUMAB
     Indication: MULTIPLE SCLEROSIS
     Dosage: 12 MG,QD
     Route: 041
     Dates: start: 20160411, end: 20160415
  2. AUBAGIO [Concomitant]
     Active Substance: TERIFLUNOMIDE
     Dosage: UNK UNK, UNK
     Route: 065

REACTIONS (16)
  - Alopecia [Not Recovered/Not Resolved]
  - Dehydration [Unknown]
  - Sepsis [Unknown]
  - Pyrexia [Unknown]
  - Urticaria [Not Recovered/Not Resolved]
  - Malaise [Unknown]
  - Urinary tract infection [Recovered/Resolved]
  - Chromaturia [Not Recovered/Not Resolved]
  - Disorientation [Unknown]
  - Headache [Not Recovered/Not Resolved]
  - Memory impairment [Not Recovered/Not Resolved]
  - Nausea [Not Recovered/Not Resolved]
  - Type 2 diabetes mellitus [Recovered/Resolved]
  - Blood glucose abnormal [Recovered/Resolved]
  - Nasal congestion [Recovered/Resolved]
  - Night sweats [Not Recovered/Not Resolved]

NARRATIVE: CASE EVENT DATE: 2016
